FAERS Safety Report 18955297 (Version 1)
Quarter: 2021Q1

REPORT INFORMATION
  Report Type: Spontaneous
  Country: US (occurrence: US)
  Receive Date: 20210301
  Receipt Date: 20210301
  Transmission Date: 20210420
  Serious: Yes (Hospitalization, Other)
  Sender: FDA-Public Use
  Company Number: US-GILEAD-2021-0518814

PATIENT
  Age: 65 Year
  Sex: Male

DRUGS (3)
  1. CYCLOPHOSPHAMIDE. [Concomitant]
     Active Substance: CYCLOPHOSPHAMIDE
     Indication: CHEMOTHERAPY
     Dosage: 500 MG/M2 FOR 5 DAYS
     Dates: start: 20201007
  2. FLUDARABINE [Concomitant]
     Active Substance: FLUDARABINE PHOSPHATE
     Indication: CHEMOTHERAPY
     Dosage: 30 MG/M2 FOR 5 DAYS
     Dates: start: 20201007
  3. TECARTUS [Suspect]
     Active Substance: BREXUCABTAGENE AUTOLEUCEL
     Indication: MANTLE CELL LYMPHOMA
     Dosage: 68 ML IN 1 BAG
     Route: 042
     Dates: start: 20201013, end: 20201013

REACTIONS (2)
  - Cytokine release syndrome [Unknown]
  - Neurotoxicity [Unknown]

NARRATIVE: CASE EVENT DATE: 20201022
